FAERS Safety Report 23565105 (Version 1)
Quarter: 2024Q1

REPORT INFORMATION
  Report Type: Spontaneous
  Country: US (occurrence: US)
  Receive Date: 20240226
  Receipt Date: 20240226
  Transmission Date: 20240410
  Serious: No
  Sender: FDA-Public Use
  Company Number: US-Dermavant-000971

PATIENT
  Age: 67 Year
  Sex: Male

DRUGS (3)
  1. TAPINAROF [Suspect]
     Active Substance: TAPINAROF
     Indication: Psoriasis
     Dosage: AREA OF APPLICATION: LEGS, THIGHS, CHEST, AND ARMS
     Route: 061
     Dates: start: 20231102, end: 20240103
  2. LOSARTAN [Concomitant]
     Active Substance: LOSARTAN
  3. LOVASTATIN [Concomitant]
     Active Substance: LOVASTATIN

REACTIONS (5)
  - Inflammation [Recovering/Resolving]
  - Rash [Recovering/Resolving]
  - Pruritus [Recovering/Resolving]
  - Erythema [Recovering/Resolving]
  - Insomnia [Recovering/Resolving]

NARRATIVE: CASE EVENT DATE: 20231225
